FAERS Safety Report 6342582-9 (Version None)
Quarter: 2009Q3

REPORT INFORMATION
  Report Type: 
  Country: None (occurrence: None)
  Receive Date: 20090908
  Receipt Date: 20090903
  Transmission Date: 20100115
  Serious: Yes (Death, Hospitalization)
  Sender: FDA-Public Use
  Company Number: JP-JNJFOC-20090703644

PATIENT
  Sex: Female
  Weight: 58 kg

DRUGS (6)
  1. DOXORUBICIN HCL [Suspect]
     Indication: OVARIAN CANCER RECURRENT
     Route: 042
  2. DEXAMETHASONE [Concomitant]
  3. HEPARIN [Concomitant]
     Route: 061
  4. ALBUMIN TANNATE [Concomitant]
     Route: 048
  5. BIFIDOBACTERIUM [Concomitant]
     Route: 048
  6. SENNOSIDE [Concomitant]
     Route: 048

REACTIONS (5)
  - DEHYDRATION [None]
  - HEPATIC FUNCTION ABNORMAL [None]
  - OVARIAN CANCER [None]
  - RENAL FAILURE [None]
  - VOMITING [None]
